FAERS Safety Report 4657390-4 (Version None)
Quarter: 2005Q2

REPORT INFORMATION
  Report Type: 
  Country: None (occurrence: None)
  Receive Date: 20050405
  Receipt Date: 20041202
  Transmission Date: 20051028
  Serious: Yes (Life-Threatening, Other)
  Sender: FDA-Public Use
  Company Number: 2004057016

PATIENT
  Sex: Male

DRUGS (4)
  1. GEODON [Suspect]
     Indication: PSYCHOTIC DISORDER
     Dosage: 80 MG (1 IN 1 D),
     Dates: start: 20040715
  2. CLOZAPINE [Concomitant]
  3. TOPIRAMATE [Concomitant]
  4. PHENELZINE SULFATE (PHENELZINE SULFATE) [Concomitant]

REACTIONS (1)
  - BLOOD GLUCOSE DECREASED [None]
